FAERS Safety Report 5883724-9 (Version None)
Quarter: 2008Q3

REPORT INFORMATION
  Report Type: 
  Country: None (occurrence: None)
  Receive Date: 20080911
  Receipt Date: 20080828
  Transmission Date: 20090109
  Serious: Yes (Hospitalization)
  Sender: FDA-Public Use
  Company Number: A-NJ2008-21614

PATIENT
  Age: 52 Year
  Sex: Female

DRUGS (4)
  1. TRACLEER [Suspect]
     Indication: PULMONARY HYPERTENSION
     Dosage: 125 MG, BID; ORAL
     Route: 048
     Dates: start: 20071001
  2. PROTONIX [Concomitant]
  3. FERROUS SULFATE TAB [Concomitant]
  4. COUMADIN [Concomitant]

REACTIONS (6)
  - ANAEMIA [None]
  - BLOOD PRESSURE DECREASED [None]
  - OEDEMA PERIPHERAL [None]
  - PULMONARY EMBOLISM [None]
  - PULMONARY GRANULOMA [None]
  - PULMONARY OEDEMA [None]
